FAERS Safety Report 26002611 (Version 1)
Quarter: 2025Q4

REPORT INFORMATION
  Report Type: Spontaneous
  Country: CN (occurrence: CN)
  Receive Date: 20251106
  Receipt Date: 20251106
  Transmission Date: 20260118
  Serious: Yes (Hospitalization, Other)
  Sender: UNICHEM
  Company Number: CN-UNICHEM LABORATORIES LIMITED-UNI-2025-CN-003643

PATIENT

DRUGS (2)
  1. LAMOTRIGINE [Suspect]
     Active Substance: LAMOTRIGINE
     Indication: Epilepsy
     Dosage: 75 MILLIGRAM, BID
     Route: 065
  2. LEVERITACETAM [Concomitant]
     Indication: Epilepsy
     Dosage: 250 MILLIGRAM, BID
     Route: 065

REACTIONS (6)
  - Epidermolysis bullosa [Recovering/Resolving]
  - Hepatitis cholestatic [Unknown]
  - Cholangitis [Unknown]
  - Drug-induced liver injury [Unknown]
  - Biliary dilatation [Unknown]
  - Toxic epidermal necrolysis [Unknown]
